FAERS Safety Report 9840952 (Version 1)
Quarter: 2014Q1

REPORT INFORMATION
  Report Type: Spontaneous
  Country: US (occurrence: US)
  Receive Date: 20140124
  Receipt Date: 20140124
  Transmission Date: 20141002
  Serious: Yes (Hospitalization)
  Sender: FDA-Public Use
  Company Number: US-ELI_LILLY_AND_COMPANY-US201401005093

PATIENT
  Sex: Female

DRUGS (2)
  1. CYMBALTA [Suspect]
     Indication: DEPRESSION
     Dosage: 1 DF, UNKNOWN
     Route: 065
     Dates: start: 2011
  2. CYMBALTA [Suspect]
     Dosage: 90 MG, QD
     Route: 065
     Dates: start: 2013

REACTIONS (4)
  - Cerebrovascular accident [Recovered/Resolved with Sequelae]
  - Convulsion [Unknown]
  - Amnesia [Not Recovered/Not Resolved]
  - Drug ineffective [Recovered/Resolved]
